FAERS Safety Report 4366095-9 (Version None)
Quarter: 2004Q2

REPORT INFORMATION
  Report Type: 
  Country: None (occurrence: None)
  Receive Date: 20040524
  Receipt Date: 20040513
  Transmission Date: 20050107
  Serious: Yes (Death, Other)
  Sender: FDA-Public Use
  Company Number: 2004213786IN

PATIENT
  Age: 65 Year
  Sex: Female
  Weight: 60 kg

DRUGS (5)
  1. FRAGMIN [Suspect]
     Indication: PERIPHERAL ISCHAEMIA
     Dosage: 500J0 IU, QD, SUBCUTANEOUS
     Route: 058
     Dates: start: 20040122, end: 20040125
  2. INSULIN [Suspect]
  3. COMPLAMIN TAB [Suspect]
  4. ASPIRIN [Suspect]
  5. ALA (ALPHA-LIPOIC ACID) [Suspect]

REACTIONS (3)
  - DYSPNOEA [None]
  - LEFT VENTRICULAR FAILURE [None]
  - PULMONARY OEDEMA [None]
